FAERS Safety Report 23268612 (Version 1)
Quarter: 2023Q4

REPORT INFORMATION
  Report Type: Spontaneous
  Country: US (occurrence: US)
  Receive Date: 20231206
  Receipt Date: 20231206
  Transmission Date: 20240110
  Serious: No
  Sender: FDA-Public Use
  Company Number: US-PFIZER INC-PV202300194021

PATIENT
  Sex: Male

DRUGS (1)
  1. IBRANCE [Suspect]
     Active Substance: PALBOCICLIB
     Dosage: UNK

REACTIONS (1)
  - Liver disorder [Unknown]
